FAERS Safety Report 4464209-3 (Version None)
Quarter: 2004Q4

REPORT INFORMATION
  Report Type: 
  Country: None (occurrence: None)
  Receive Date: 20041001
  Receipt Date: 19961001
  Transmission Date: 20050328
  Serious: Yes (Hospitalization)
  Sender: FDA-Public Use
  Company Number: FR-GLAXOSMITHKLINE-B0197949A

PATIENT
  Age: 57 Year
  Sex: Male

DRUGS (7)
  1. ZENTEL [Suspect]
     Indication: TOXOCARIASIS
     Dosage: 400MG TWICE PER DAY
     Route: 048
     Dates: start: 19951230, end: 19960810
  2. TELDANE [Concomitant]
     Route: 048
     Dates: start: 19940101
  3. ZYRTEC [Concomitant]
     Route: 048
     Dates: start: 19940101
  4. TADENAN [Concomitant]
     Indication: PROSTATIC ADENOMA
     Route: 048
  5. PERMIXON [Concomitant]
     Indication: PROSTATIC ADENOMA
     Route: 048
  6. ASPEGIC 325 [Concomitant]
     Dosage: 1000MG FOUR TIMES PER DAY
     Route: 048
     Dates: start: 19960815, end: 19960816
  7. DOLIPRANE [Concomitant]
     Route: 048
     Dates: start: 19960816

REACTIONS (10)
  - ARTHRALGIA [None]
  - CONJUNCTIVITIS [None]
  - DERMATITIS BULLOUS [None]
  - ERYTHEMA MULTIFORME [None]
  - HEPATIC TRAUMA [None]
  - MUCOSAL EROSION [None]
  - MYALGIA [None]
  - PURPURA [None]
  - PYREXIA [None]
  - STEVENS-JOHNSON SYNDROME [None]
